FAERS Safety Report 16681213 (Version 2)
Quarter: 2020Q1

REPORT INFORMATION
  Report Type: Spontaneous
  Country: GB (occurrence: GB)
  Receive Date: 20190808
  Receipt Date: 20200109
  Transmission Date: 20200409
  Serious: Yes (Death, Life-Threatening, Hospitalization, Other)
  Sender: FDA-Public Use
  Company Number: GB-TEVA-2019-GB-1089772

PATIENT
  Age: 61 Year
  Sex: Male

DRUGS (11)
  1. RAMIPRIL. [Suspect]
     Active Substance: RAMIPRIL
  2. RAMIPRIL. [Suspect]
     Active Substance: RAMIPRIL
     Indication: HYPERTENSION
     Dosage: 10 MG
     Route: 048
  3. METFORMIN [Concomitant]
     Active Substance: METFORMIN HYDROCHLORIDE
  4. COCODAMOL [Concomitant]
     Active Substance: ACETAMINOPHEN\CODEINE PHOSPHATE
  5. SPIRIVA [Concomitant]
     Active Substance: TIOTROPIUM BROMIDE MONOHYDRATE
     Dates: start: 201905
  6. DOXAZOSIN [Concomitant]
     Active Substance: DOXAZOSIN MESYLATE
  7. PREDNISOLONE. [Concomitant]
     Active Substance: PREDNISOLONE
  8. IBUPROFEN. [Concomitant]
     Active Substance: IBUPROFEN
  9. ZAPAIN [Concomitant]
     Active Substance: ACETAMINOPHEN\CODEINE PHOSPHATE
     Dosage: 1-2 FOUR TIMES PER DAY
  10. LERCANIDIPINE [Concomitant]
     Active Substance: LERCANIDIPINE
  11. LANSOPRAZOLE. [Concomitant]
     Active Substance: LANSOPRAZOLE

REACTIONS (4)
  - Pruritus [Fatal]
  - Cardiac arrest [Fatal]
  - Urticaria [Fatal]
  - Angioedema [Fatal]

NARRATIVE: CASE EVENT DATE: 201907
